FAERS Safety Report 19180857 (Version 1)
Quarter: 2021Q2

REPORT INFORMATION
  Report Type: Spontaneous
  Country: FI (occurrence: FI)
  Receive Date: 20210426
  Receipt Date: 20210426
  Transmission Date: 20210717
  Serious: Yes (Hospitalization)
  Sender: FDA-Public Use
  Company Number: FI-PFIZER INC-2021408785

PATIENT
  Age: 31 Year
  Sex: Female

DRUGS (1)
  1. CYTOTEC [Suspect]
     Active Substance: MISOPROSTOL
     Indication: ABORTION
     Dates: start: 20210317, end: 20210317

REACTIONS (11)
  - Uterine spasm [Recovering/Resolving]
  - Uterine pain [Recovering/Resolving]
  - Chills [Recovering/Resolving]
  - Vomiting [Recovering/Resolving]
  - Muscle spasms [Recovering/Resolving]
  - Off label use [Recovering/Resolving]
  - Uterine cervical pain [Recovering/Resolving]
  - Diarrhoea [Recovering/Resolving]
  - Glossodynia [Recovering/Resolving]
  - Cold sweat [Recovering/Resolving]
  - Pelvic pain [Recovering/Resolving]

NARRATIVE: CASE EVENT DATE: 20210317
